FAERS Safety Report 12877692 (Version 4)
Quarter: 2017Q1

REPORT INFORMATION
  Report Type: Spontaneous
  Country: US (occurrence: US)
  Receive Date: 20161024
  Receipt Date: 20170103
  Transmission Date: 20170428
  Serious: Yes (Hospitalization)
  Sender: FDA-Public Use
  Company Number: US-PFIZER INC-2016490087

PATIENT
  Age: 66 Year
  Sex: Female

DRUGS (18)
  1. ASPIR 81 [Concomitant]
     Dosage: 81 MG, DAILY
     Route: 048
  2. STOOL SOFTENER (DOCUSATE CALCIUM) [Concomitant]
     Active Substance: DOCUSATE CALCIUM
     Dosage: 100 MG, AS NEEDED, (TAKE 1 BID)
     Route: 048
  3. SUTENT [Suspect]
     Active Substance: SUNITINIB MALATE
     Indication: RENAL CELL CARCINOMA
     Dosage: 37.5 MG, 1X/DAY (AT BEDTIME) ((3)12.5MG CAPSULES ON 17OCT2016- THIS WEEK)
     Dates: start: 20161017, end: 20161104
  4. IBUPROFEN. [Concomitant]
     Active Substance: IBUPROFEN
     Indication: PAIN
     Dosage: 200 MG, AS NEEDED (Q8H)
     Route: 048
  5. SUTENT [Suspect]
     Active Substance: SUNITINIB MALATE
     Indication: BREAST CANCER METASTATIC
     Dosage: 25 MG, 1X/DAY (AT BEDTIME) (25MG OR (2)12.5MG CAPSULES ON 10OCT2016 FOR THE FIRST WEEK)
     Dates: start: 20161010
  6. LOTREL /01388302/ [Concomitant]
     Active Substance: LOTEPREDNOL ETABONATE
     Dosage: (10 MG-20MG), DAILY
     Route: 048
  7. OMEPRAZOLE. [Concomitant]
     Active Substance: OMEPRAZOLE
     Dosage: 20 MG, 1X/DAY
     Route: 048
  8. AMLODIPINE [Concomitant]
     Active Substance: AMLODIPINE BESYLATE
     Dosage: UNK
  9. ATIVAN [Concomitant]
     Active Substance: LORAZEPAM
     Indication: ANXIETY
     Dosage: 1 MG, AS NEEDED, (Q4H)
     Route: 048
  10. ATIVAN [Concomitant]
     Active Substance: LORAZEPAM
     Indication: INSOMNIA
  11. SUTENT [Suspect]
     Active Substance: SUNITINIB MALATE
     Dosage: 50 MG, DAILY (DAILY AND CONTINUING FORWARD- SUTENT FOR 28 DAYS ON AND 14 DAYS OFF)
     Dates: start: 20161024, end: 2016
  12. FISH OIL CONCENTRATE [Concomitant]
     Active Substance: FISH OIL
     Dosage: 1000 MG, DAILY
     Route: 048
  13. METHADONE HCL [Concomitant]
     Active Substance: METHADONE HYDROCHLORIDE
     Dosage: 5 MG, 3X/DAY
     Route: 048
  14. OXYCODONE HYDROCHLORIDE. [Concomitant]
     Active Substance: OXYCODONE HYDROCHLORIDE
     Indication: BREAKTHROUGH PAIN
     Dosage: 10 MG, AS NEEDED, (Q3-4H)
     Route: 048
  15. TENORMIN [Concomitant]
     Active Substance: ATENOLOL
     Dosage: UNK
  16. ATENOLOL. [Concomitant]
     Active Substance: ATENOLOL
     Dosage: 100 MG, DAILY
     Route: 048
  17. ATIVAN [Concomitant]
     Active Substance: LORAZEPAM
     Indication: NAUSEA
     Dosage: UNK, 1X/DAY (AT BEDTIME)
     Route: 048
  18. PROCHLORPERAZINE MALEATE. [Concomitant]
     Active Substance: PROCHLORPERAZINE MALEATE
     Indication: NAUSEA
     Dosage: 10 MG, AS NEEDED, (Q6H)
     Route: 048

REACTIONS (8)
  - Fatigue [Unknown]
  - Vomiting [Recovered/Resolved]
  - Dyspepsia [Recovered/Resolved]
  - Asthenia [Recovered/Resolved]
  - Product use issue [Unknown]
  - Nausea [Recovered/Resolved]
  - Diarrhoea [Unknown]
  - Joint stiffness [Unknown]

NARRATIVE: CASE EVENT DATE: 2016
